FAERS Safety Report 12247094 (Version 1)
Quarter: 2016Q2

REPORT INFORMATION
  Report Type: Report from Study
  Country: IT (occurrence: IT)
  Receive Date: 20160407
  Receipt Date: 20160407
  Transmission Date: 20160815
  Serious: Yes (Life-Threatening, Hospitalization, Other)
  Sender: FDA-Public Use
  Company Number: IT-BRISTOL-MYERS SQUIBB COMPANY-BMS-2016-025241

PATIENT
  Sex: Female

DRUGS (1)
  1. NIVOLUMAB [Suspect]
     Active Substance: NIVOLUMAB
     Indication: NON-SMALL CELL LUNG CANCER
     Dosage: 3 MG/KG, Q2WK
     Route: 065
     Dates: start: 20160219

REACTIONS (8)
  - General physical health deterioration [Not Recovered/Not Resolved]
  - Metastasis [Unknown]
  - Pyrexia [Recovered/Resolved with Sequelae]
  - Anaemia [Unknown]
  - Acinetobacter infection [Unknown]
  - Asthenia [Not Recovered/Not Resolved]
  - Transfusion [Unknown]
  - Staphylococcal infection [Unknown]
